FAERS Safety Report 6800749-7 (Version None)
Quarter: 2010Q2

REPORT INFORMATION
  Report Type: 
  Country: None (occurrence: None)
  Receive Date: 20100629
  Receipt Date: 20100629
  Transmission Date: 20101027
  Serious: Yes (Hospitalization)
  Sender: FDA-Public Use
  Company Number: None

PATIENT
  Age: 39 Month
  Sex: Male
  Weight: 12.2471 kg

DRUGS (1)
  1. CHILDREN'S MOTRIN [Suspect]
     Indication: PYREXIA
     Dosage: 1 TSP
     Dates: start: 20100625, end: 20100628

REACTIONS (3)
  - POSTURE ABNORMAL [None]
  - PRODUCT QUALITY ISSUE [None]
  - STARING [None]
